FAERS Safety Report 4279903-7 (Version None)
Quarter: 2004Q1

REPORT INFORMATION
  Report Type: 
  Country: None (occurrence: None)
  Receive Date: 20040126
  Receipt Date: 20040110
  Transmission Date: 20041129
  Serious: No
  Sender: FDA-Public Use
  Company Number: RS003846-CDN

PATIENT
  Age: 82 Year
  Sex: Female

DRUGS (6)
  1. RABEPRAZOLE SODIUM [Suspect]
     Dosage: 20 MG, 2 IN 1 D, ORAL
     Route: 048
     Dates: start: 20030814, end: 20030901
  2. HYDROCHLOROTHIAZIDE/AMILORIDE (HYDROCHLOROTHIAZIDE) [Concomitant]
  3. LOSARTAN (LOSARTAN) [Concomitant]
  4. LIPITOR [Concomitant]
  5. COZAAR [Concomitant]
  6. MODURET (MODURETIC) [Concomitant]

REACTIONS (2)
  - ARRHYTHMIA [None]
  - ATRIOVENTRICULAR BLOCK [None]
